FAERS Safety Report 4974099-8 (Version None)
Quarter: 2006Q1

REPORT INFORMATION
  Report Type: 
  Country: None (occurrence: None)
  Receive Date: 20060130
  Receipt Date: 20051217
  Transmission Date: 20060701
  Serious: No
  Sender: FDA-Public Use
  Company Number: COT_0346_2005

PATIENT
  Age: 57 Year
  Sex: Female
  Weight: 49.8957 kg

DRUGS (8)
  1. VENTAVIS [Suspect]
     Indication: PULMONARY HYPERTENSION
     Dosage: 5 MCG 6XD IH
     Route: 055
     Dates: start: 20051026
  2. TRACLEER [Concomitant]
  3. ASPIRIN [Concomitant]
  4. METOPROLOL TARTRATE [Concomitant]
  5. CRESTOR [Concomitant]
  6. REVATIO [Concomitant]
  7. DOCETAXEL [Concomitant]
  8. CYCLOPHOSPHAMIDE [Concomitant]

REACTIONS (2)
  - FATIGUE [None]
  - NECK PAIN [None]
